FAERS Safety Report 15108297 (Version 1)
Quarter: 2018Q3

REPORT INFORMATION
  Report Type: Spontaneous
  Country: US (occurrence: US)
  Receive Date: 20180705
  Receipt Date: 20180705
  Transmission Date: 20181010
  Serious: No
  Sender: FDA-Public Use
  Company Number: US-SHIRE-US201823216

PATIENT
  Sex: Female
  Weight: 98.41 kg

DRUGS (1)
  1. NATPARA (PARATHYROID HORMONE) [Suspect]
     Active Substance: PARATHYROID HORMONE
     Indication: PRODUCT USED FOR UNKNOWN INDICATION
     Route: 065

REACTIONS (6)
  - Drug ineffective [Unknown]
  - Tremor [Unknown]
  - Electrocardiogram abnormal [Unknown]
  - Tetany [Unknown]
  - Hypocalcaemia [Unknown]
  - Hypoaesthesia [Recovering/Resolving]
